FAERS Safety Report 15850983 (Version 2)
Quarter: 2019Q1

REPORT INFORMATION
  Report Type: Report from Study
  Country: US (occurrence: US)
  Receive Date: 20190122
  Receipt Date: 20190227
  Transmission Date: 20190417
  Serious: No
  Sender: FDA-Public Use
  Company Number: PHEH2019US002584

PATIENT
  Sex: Female

DRUGS (1)
  1. COSENTYX [Suspect]
     Active Substance: SECUKINUMAB
     Indication: PSORIASIS
     Dosage: UNK
     Route: 058

REACTIONS (8)
  - Chest pain [Unknown]
  - Pruritus [Unknown]
  - Dysphonia [Unknown]
  - Dry throat [Unknown]
  - Drug effect incomplete [Unknown]
  - Cough [Unknown]
  - Chest discomfort [Unknown]
  - Pain [Unknown]
